FAERS Safety Report 20472838 (Version 3)
Quarter: 2022Q4

REPORT INFORMATION
  Report Type: Report from Study
  Country: CA (occurrence: CA)
  Receive Date: 20220215
  Receipt Date: 20221219
  Transmission Date: 20230113
  Serious: Yes (Hospitalization)
  Sender: FDA-Public Use
  Company Number: CA-JNJFOC-20220158787

PATIENT
  Age: 16 Year
  Sex: Female
  Weight: 59 kg

DRUGS (2)
  1. REMICADE [Suspect]
     Active Substance: INFLIXIMAB
     Indication: Crohn^s disease
     Dosage: RECEIVED A DOSE OF 5 MG/KG.
     Route: 041
     Dates: start: 20220207
  2. REMICADE [Suspect]
     Active Substance: INFLIXIMAB
     Dosage: REQUESTED DOSE INCREASE TO MAINTAIN 5MG/KG
     Route: 041

REACTIONS (4)
  - Thrombosis [Unknown]
  - Helicobacter infection [Unknown]
  - Weight increased [Unknown]
  - Off label use [Unknown]

NARRATIVE: CASE EVENT DATE: 20220101
